FAERS Safety Report 7537662-6 (Version None)
Quarter: 2011Q2

REPORT INFORMATION
  Report Type: 
  Country: None (occurrence: None)
  Receive Date: 20110609
  Receipt Date: 20070928
  Transmission Date: 20111010
  Serious: Yes (Death, Hospitalization, Other)
  Sender: FDA-Public Use
  Company Number: PHMT2007CA01748

PATIENT
  Sex: Female

DRUGS (1)
  1. CLOZAPINE [Suspect]
     Dosage: 150 MG DAILY DOSE
     Route: 048
     Dates: start: 20070529, end: 20070822

REACTIONS (4)
  - COMA [None]
  - PULMONARY EMBOLISM [None]
  - ABASIA [None]
  - CONVULSION [None]
